FAERS Safety Report 14780976 (Version 1)
Quarter: 2018Q2

REPORT INFORMATION
  Report Type: Spontaneous
  Country: DK (occurrence: DK)
  Receive Date: 20180419
  Receipt Date: 20180419
  Transmission Date: 20180711
  Serious: Yes (Hospitalization)
  Sender: FDA-Public Use
  Company Number: DK-TEVA-2018-DK-881908

PATIENT
  Age: 80 Year
  Sex: Male
  Weight: 80 kg

DRUGS (2)
  1. MEMANTINE ^RATIOPHARM^ [Suspect]
     Active Substance: MEMANTINE
     Indication: DEMENTIA
     Dosage: STYRKE: 20 MG
     Route: 048
     Dates: start: 20110911, end: 20171212
  2. SINEMET [Concomitant]
     Active Substance: CARBIDOPA\LEVODOPA
     Indication: PARKINSONISM
     Dosage: DOSAGE: EFTER SKEMA, STYRKE: 100 + 25 MG
     Route: 048
     Dates: start: 20110911

REACTIONS (1)
  - Jaundice [Recovered/Resolved]

NARRATIVE: CASE EVENT DATE: 20171201
